FAERS Safety Report 8929013 (Version 2)
Quarter: 2012Q4

REPORT INFORMATION
  Report Type: 
  Country: US (occurrence: US)
  Receive Date: 20121128
  Receipt Date: 20121218
  Transmission Date: 20130627
  Serious: No
  Sender: FDA-Public Use
  Company Number: US-JNJFOC-20121108195

PATIENT
  Age: 60 None
  Sex: Male
  Weight: 154.22 kg

DRUGS (10)
  1. DURAGESIC [Suspect]
     Indication: PAIN
     Dosage: 2 X 25 ug/hr patches
     Route: 062
     Dates: start: 201211, end: 201211
  2. DURAGESIC [Suspect]
     Indication: PAIN
     Route: 062
     Dates: start: 2007
  3. DURAGESIC [Suspect]
     Indication: PAIN
     Route: 062
     Dates: start: 2011
  4. DURAGESIC [Suspect]
     Indication: PAIN
     Dosage: 2 X 25 ug/hr patches
     Route: 062
     Dates: start: 2010, end: 201211
  5. DURAGESIC [Suspect]
     Indication: ARTHROPATHY
     Dosage: if needed
     Route: 062
     Dates: start: 20121114, end: 20121115
  6. DURAGESIC [Suspect]
     Indication: ARTHROPATHY
     Dosage: if needed
     Route: 062
     Dates: start: 20121112, end: 20121113
  7. DURAGESIC [Suspect]
     Indication: ARTHROPATHY
     Dosage: 1-2 in 72 hours
     Route: 062
  8. COUMADIN [Concomitant]
     Indication: THROMBOSIS
     Route: 048
     Dates: start: 2007
  9. STROVITE [Concomitant]
     Route: 065
     Dates: start: 2006
  10. TOCOPHEROL [Concomitant]
     Route: 065

REACTIONS (8)
  - Nausea [Recovered/Resolved]
  - Dizziness [Not Recovered/Not Resolved]
  - Toxicity to various agents [Recovered/Resolved]
  - Inappropriate schedule of drug administration [Unknown]
  - Overdose [Not Recovered/Not Resolved]
  - Euphoric mood [Recovered/Resolved]
  - Vomiting [Recovered/Resolved]
  - Headache [Recovered/Resolved]
